FAERS Safety Report 14770355 (Version 3)
Quarter: 2018Q3

REPORT INFORMATION
  Report Type: Report from Study
  Country: None (occurrence: CN)
  Receive Date: 20180417
  Receipt Date: 20180717
  Transmission Date: 20181010
  Serious: Yes (Other)
  Sender: FDA-Public Use
  Company Number: CN-ABBVIE-18P-035-2316702-00

PATIENT
  Age: 55 Year
  Sex: Female
  Weight: 57 kg

DRUGS (4)
  1. ABT?493/ABT?530 [Suspect]
     Active Substance: GLECAPREVIR\PIBRENTASVIR
     Indication: CHRONIC HEPATITIS C
     Dosage: 300/120MG QD (3 TABLETS)
     Route: 048
     Dates: start: 20180108, end: 20180403
  2. ISOPHANE PROTAMINE BIOSYNTHETIC HUMANLN SULIN [Concomitant]
     Indication: DIABETES MELLITUS
     Route: 058
     Dates: start: 201406
  3. LEVOFLOXACIN EYE DROPS [Concomitant]
     Active Substance: LEVOFLOXACIN
     Indication: RETINAL DISORDER
     Dates: start: 20180306
  4. ISOPHANE PROTAMINE BIOSYNTHETIC HUMANLN SULIN [Concomitant]
     Route: 058
     Dates: start: 201406

REACTIONS (1)
  - Upper gastrointestinal haemorrhage [Recovered/Resolved]

NARRATIVE: CASE EVENT DATE: 20180325
